FAERS Safety Report 9073531 (Version 1)
Quarter: 2013Q1

REPORT INFORMATION
  Report Type: Report from Study
  Country: US (occurrence: US)
  Receive Date: 20130129
  Receipt Date: 20130129
  Transmission Date: 20140127
  Serious: No
  Sender: FDA-Public Use
  Company Number: US-ABBOTT-12P-163-0918502-00

PATIENT
  Age: 56 Year
  Sex: Female

DRUGS (9)
  1. HUMIRA 40 MG/0.8 ML PEN [Suspect]
     Indication: RHEUMATOID ARTHRITIS
     Dates: start: 20120314
  2. TREXALL [Concomitant]
     Indication: POLYCHONDRITIS
  3. PREDNISONE [Concomitant]
     Indication: RHEUMATOID ARTHRITIS
  4. FOLIC ACID [Concomitant]
     Indication: SUPPLEMENTATION THERAPY
     Dosage: 3 PILLS IN THE AM
  5. AMLODIPINE BENAZEPRIL [Concomitant]
     Indication: BLOOD PRESSURE
     Dosage: 5-20 MG DAILY
  6. CARVEDILOL [Concomitant]
     Indication: BLOOD PRESSURE
  7. CHLORTHALIDONE [Concomitant]
     Indication: BLOOD PRESSURE
  8. NASONEX [Concomitant]
     Indication: SINUSITIS
     Dosage: 2 SPRAYS EACH NOSTRIL DAILY
  9. OTHER MEDICATION(S) [Concomitant]
     Indication: PRODUCT USED FOR UNKNOWN INDICATION
     Dosage: PRN

REACTIONS (7)
  - Ear discomfort [Not Recovered/Not Resolved]
  - Head discomfort [Not Recovered/Not Resolved]
  - Joint swelling [Unknown]
  - Pyrexia [Not Recovered/Not Resolved]
  - Increased upper airway secretion [Unknown]
  - Respiratory tract congestion [Unknown]
  - Palpitations [Recovered/Resolved]
